FAERS Safety Report 8339968-X (Version None)
Quarter: 2012Q2

REPORT INFORMATION
  Report Type: 
  Country: None (occurrence: None)
  Receive Date: 20120502
  Receipt Date: 20120502
  Transmission Date: 20120825
  Serious: Yes (Other)
  Sender: FDA-Public Use
  Company Number: None

PATIENT
  Sex: Female
  Weight: 49.8957 kg

DRUGS (1)
  1. ALPRAZOLAM [Suspect]
     Indication: PANIC ATTACK
     Dosage: 0.5MG Q4HOURS P.O. (MOUTH)
     Route: 048
     Dates: start: 20120101, end: 20120301

REACTIONS (5)
  - DYSPNOEA [None]
  - DRUG INEFFECTIVE [None]
  - PANIC ATTACK [None]
  - CONDITION AGGRAVATED [None]
  - PRODUCT SUBSTITUTION ISSUE [None]
